FAERS Safety Report 7955704 (Version 2)
Quarter: 2012Q4

REPORT INFORMATION
  Report Type: 
  Country: US (occurrence: US)
  Receive Date: 20110523
  Receipt Date: 20120907
  Transmission Date: 20130627
  Serious: Yes (Other)
  Sender: FDA-Public Use
  Company Number: US-ASTRAZENECA-2009UW06379

PATIENT
  Age: 78 Year
  Sex: Female

DRUGS (11)
  1. TOPROL XL [Suspect]
     Indication: HYPERTENSION
     Route: 048
     Dates: start: 2010
  2. TOPROL XL [Suspect]
     Indication: HYPERTENSION
     Route: 048
  3. TOPROL XL [Suspect]
     Indication: HYPERTENSION
     Route: 048
  4. TOPROL XL [Suspect]
     Indication: HYPERTENSION
     Route: 048
  5. NEXIUM [Suspect]
     Route: 048
  6. ASPIRIN [Concomitant]
  7. SUPPLEMENTS [Concomitant]
  8. RESTORIL [Concomitant]
  9. FIUROCET [Concomitant]
  10. PERCOCET [Concomitant]
  11. ATIVAN [Concomitant]

REACTIONS (9)
  - Hypertension [Not Recovered/Not Resolved]
  - Hepatitis D [Unknown]
  - Pain in extremity [Unknown]
  - Tachycardia [Unknown]
  - Anxiety [Unknown]
  - Palpitations [Unknown]
  - Headache [Unknown]
  - Nightmare [Unknown]
  - Drug ineffective [Unknown]
